FAERS Safety Report 9737152 (Version 1)
Quarter: 2013Q4

REPORT INFORMATION
  Report Type: Spontaneous
  Country: US (occurrence: US)
  Receive Date: 20131206
  Receipt Date: 20131206
  Transmission Date: 20140711
  Serious: Yes (Other)
  Sender: FDA-Public Use
  Company Number: US-ELI_LILLY_AND_COMPANY-US201311009247

PATIENT
  Sex: Male
  Weight: 29.48 kg

DRUGS (2)
  1. STRATTERA [Suspect]
     Indication: ATTENTION DEFICIT/HYPERACTIVITY DISORDER
     Dosage: 40 MG, QD
     Route: 065
     Dates: start: 201206
  2. ABILIFY [Concomitant]
     Dosage: 2 MG, QD
     Route: 065

REACTIONS (12)
  - Self injurious behaviour [Recovering/Resolving]
  - Drug ineffective [Unknown]
  - Nausea [Unknown]
  - Diarrhoea [Unknown]
  - Abdominal pain upper [Unknown]
  - Incontinence [Unknown]
  - Vomiting [Unknown]
  - Food allergy [Unknown]
  - Abnormal behaviour [Recovering/Resolving]
  - Anger [Recovering/Resolving]
  - Aggression [Recovering/Resolving]
  - Blood heavy metal increased [Unknown]
